FAERS Safety Report 22088276 (Version 2)
Quarter: 2023Q2

REPORT INFORMATION
  Report Type: Spontaneous
  Country: US (occurrence: US)
  Receive Date: 20230313
  Receipt Date: 20230421
  Transmission Date: 20230722
  Serious: No
  Sender: FDA-Public Use
  Company Number: US-GSK-US2023AMR035798

PATIENT
  Age: 46 Year
  Sex: Female

DRUGS (8)
  1. FLOLAN [Suspect]
     Active Substance: EPOPROSTENOL SODIUM
     Indication: Pulmonary arterial hypertension
     Dosage: 6 NG/KG, (6 NG/KG/MIN)
     Dates: start: 20201110
  2. FLOLAN [Suspect]
     Active Substance: EPOPROSTENOL SODIUM
     Dosage: 4 NG/KG, CO (4 NG/KG/MIN) 0.5 MG /88 ML/DAY
     Dates: start: 20201110
  3. GLYCINE\MANNITOL\SODIUM CHLORIDE [Suspect]
     Active Substance: GLYCINE\MANNITOL\SODIUM CHLORIDE
     Indication: Pulmonary arterial hypertension
     Dosage: UNK
     Dates: start: 20201110
  4. GLYCINE\MANNITOL\SODIUM CHLORIDE [Suspect]
     Active Substance: GLYCINE\MANNITOL\SODIUM CHLORIDE
     Dosage: UNK
  5. UPTRAVI [Concomitant]
     Active Substance: SELEXIPAG
     Indication: Product used for unknown indication
     Dosage: UNK
  6. ADCIRCA [Concomitant]
     Active Substance: TADALAFIL
     Indication: Product used for unknown indication
     Dosage: UNK
  7. AMBRISENTAN [Concomitant]
     Active Substance: AMBRISENTAN
     Indication: Product used for unknown indication
     Dosage: UNK
  8. WARFARIN [Concomitant]
     Active Substance: WARFARIN
     Indication: Product used for unknown indication
     Dosage: UNK

REACTIONS (2)
  - Nasopharyngitis [Unknown]
  - Therapy cessation [Unknown]

NARRATIVE: CASE EVENT DATE: 20230406
